FAERS Safety Report 16294573 (Version 1)
Quarter: 2019Q2

REPORT INFORMATION
  Report Type: Spontaneous
  Country: US (occurrence: US)
  Receive Date: 20190404
  Receipt Date: 20190404
  Transmission Date: 20190711
  Serious: No
  Sender: FDA-Public Use
  Company Number: None

PATIENT
  Age: 91 Year
  Sex: Male
  Weight: 90.72 kg

DRUGS (1)
  1. BUPRENORPHINE-NALOXONE STRIPS (8/2MG FILM) [Suspect]
     Active Substance: BUPRENORPHINE\NALOXONE
     Indication: DRUG DEPENDENCE
     Dosage: ?          OTHER DOSE:8/2 MG ;?
     Route: 060
     Dates: start: 20190313

REACTIONS (4)
  - Diarrhoea [None]
  - Nausea [None]
  - Asthenia [None]
  - Muscle spasms [None]

NARRATIVE: CASE EVENT DATE: 20190313
